FAERS Safety Report 18820423 (Version 1)
Quarter: 2021Q1

REPORT INFORMATION
  Report Type: Spontaneous
  Country: US (occurrence: US)
  Receive Date: 20210202
  Receipt Date: 20210202
  Transmission Date: 20210419
  Serious: Yes (Life-Threatening, Hospitalization, Other)
  Sender: FDA-Public Use
  Company Number: US-LUPIN PHARMACEUTICALS INC.-2021-00977

PATIENT
  Age: 22 Year
  Sex: Female

DRUGS (1)
  1. LAMOTRIGINE. [Suspect]
     Active Substance: LAMOTRIGINE
     Indication: BORDERLINE PERSONALITY DISORDER
     Dosage: 6000 MILLIGRAM
     Route: 065

REACTIONS (10)
  - Overdose [Unknown]
  - Confusional state [Unknown]
  - Toxicity to various agents [Unknown]
  - Pyrexia [Unknown]
  - Rash [Unknown]
  - White blood cell count increased [Unknown]
  - Agitation [Recovering/Resolving]
  - Delirium [Recovering/Resolving]
  - Blood creatine phosphokinase increased [Unknown]
  - Aspartate aminotransferase increased [Unknown]
